FAERS Safety Report 23064241 (Version 1)
Quarter: 2023Q4

REPORT INFORMATION
  Report Type: Spontaneous
  Country: US (occurrence: None)
  Receive Date: 20231013
  Receipt Date: 20231013
  Transmission Date: 20240110
  Serious: Yes (Hospitalization)
  Sender: FDA-Public Use
  Company Number: None

PATIENT
  Age: 49 Year
  Sex: Male
  Weight: 102 kg

DRUGS (1)
  1. ALOGLIPTIN [Suspect]
     Active Substance: ALOGLIPTIN
     Dosage: FREQUENCY : DAILY;?
     Route: 048
     Dates: start: 20221028, end: 20221030

REACTIONS (5)
  - Angina pectoris [None]
  - Dyspnoea [None]
  - Heart rate irregular [None]
  - Palpitations [None]
  - Myocardial infarction [None]

NARRATIVE: CASE EVENT DATE: 20221030
